FAERS Safety Report 7904857-9 (Version None)
Quarter: 2011Q4

REPORT INFORMATION
  Report Type: 
  Country: None (occurrence: None)
  Receive Date: 20111109
  Receipt Date: 20111028
  Transmission Date: 20120403
  Serious: Yes (Hospitalization)
  Sender: FDA-Public Use
  Company Number: PHHO2011JP17003

PATIENT
  Sex: Male
  Weight: 57 kg

DRUGS (10)
  1. NOVORAPID [Concomitant]
     Indication: TYPE 2 DIABETES MELLITUS
     Dosage: 18 IU, UNK
     Route: 058
     Dates: start: 20090702
  2. CANDESARTAN CILEXETIL [Concomitant]
     Indication: HYPERTENSION
     Dosage: 8 MG, UNK
     Route: 048
     Dates: start: 20041130
  3. NOVOLIN N [Concomitant]
     Indication: TYPE 2 DIABETES MELLITUS
     Dosage: 6 IU, UNK
     Route: 058
     Dates: start: 20081030
  4. XALATAN [Concomitant]
     Indication: GLAUCOMA
     Dosage: UNK
     Route: 048
     Dates: start: 20090319
  5. TRUSOPT [Concomitant]
     Indication: GLAUCOMA
     Dosage: UNK
     Dates: start: 20100813
  6. ALISKIREN [Suspect]
     Indication: CARDIOVASCULAR DISORDER
     Dosage: CODE NOT BROKEN
     Route: 048
     Dates: start: 20080805
  7. CARTEOLOL HYDROCHLORIDE [Concomitant]
     Indication: GLAUCOMA
     Dosage: UNK
     Dates: start: 20090403
  8. ATELEC [Concomitant]
     Indication: HYPERTENSION
     Dosage: 10 MG, UNK
     Route: 048
     Dates: start: 20060516
  9. LANSOPRAZOLE [Concomitant]
     Indication: PROPHYLAXIS AGAINST GASTROINTESTINAL ULCER
     Dosage: 15 MG, UNK
     Route: 048
     Dates: start: 20110120
  10. ASPIRIN [Concomitant]
     Indication: CAROTID ARTERY STENOSIS
     Dosage: 100 MG, UNK
     Route: 048
     Dates: start: 20050830

REACTIONS (1)
  - VITREOUS HAEMORRHAGE [None]
